FAERS Safety Report 4471532-5 (Version None)
Quarter: 2004Q4

REPORT INFORMATION
  Report Type: 
  Country: None (occurrence: None)
  Receive Date: 20041012
  Receipt Date: 20041006
  Transmission Date: 20050328
  Serious: Yes (Congenital Anomaly)
  Sender: FDA-Public Use
  Company Number: PHBS2004CA13338

PATIENT
  Age: 1 Day
  Sex: Male
  Weight: 4 kg

DRUGS (3)
  1. PAMIDRONATE DISODIUM [Suspect]
     Route: 064
  2. CALCIUM [Concomitant]
     Route: 064
  3. VITAMIN D [Concomitant]
     Route: 064

REACTIONS (4)
  - DRUG EXPOSURE DURING PREGNANCY [None]
  - HYPOCALCAEMIA [None]
  - OSTEOGENESIS IMPERFECTA [None]
  - SCLERAL DISCOLOURATION [None]
